FAERS Safety Report 23130323 (Version 2)
Quarter: 2023Q4

REPORT INFORMATION
  Report Type: Report from Study
  Country: US (occurrence: US)
  Receive Date: 20231031
  Receipt Date: 20231212
  Transmission Date: 20240110
  Serious: Yes (Other)
  Sender: FDA-Public Use
  Company Number: US-JAZZ PHARMACEUTICALS-2023-US-015229

PATIENT
  Sex: Female

DRUGS (3)
  1. XYWAV [Suspect]
     Active Substance: CALCIUM OXYBATE\MAGNESIUM OXYBATE\POTASSIUM OXYBATE\SODIUM OXYBATE
     Indication: Hypersomnia
     Dosage: 4.5 GRAM, BID
  2. SPRAVATO [Suspect]
     Active Substance: ESKETAMINE
     Indication: Depression
     Dosage: UNK
     Dates: start: 20230601, end: 20230715
  3. EFFEXOR [Concomitant]
     Active Substance: VENLAFAXINE HYDROCHLORIDE
     Indication: Product used for unknown indication
     Dosage: UNK
     Dates: start: 20230901

REACTIONS (6)
  - Glaucoma [Unknown]
  - Periodic limb movement disorder [Unknown]
  - Depression [Unknown]
  - Therapeutic response decreased [Unknown]
  - Fatigue [Not Recovered/Not Resolved]
  - Bacterial vaginosis [Unknown]

NARRATIVE: CASE EVENT DATE: 20230101
